FAERS Safety Report 6447604-2 (Version None)
Quarter: 2009Q4

REPORT INFORMATION
  Report Type: 
  Country: None (occurrence: None)
  Receive Date: 20091119
  Receipt Date: 20090930
  Transmission Date: 20100525
  Serious: Yes (Hospitalization)
  Sender: FDA-Public Use
  Company Number: US-AMGEN-KDL360699

PATIENT
  Sex: Male
  Weight: 79.9 kg

DRUGS (8)
  1. ENBREL [Suspect]
     Indication: RHEUMATOID ARTHRITIS
     Route: 058
     Dates: start: 20000101, end: 20090811
  2. PLAQUENIL [Concomitant]
     Route: 048
  3. FOSAMAX [Concomitant]
  4. DIOVAN [Concomitant]
  5. HYDROCHLOROTHIAZIDE [Concomitant]
  6. NORVASC [Concomitant]
  7. FLOMAX [Concomitant]
  8. METOPROLOL [Concomitant]

REACTIONS (6)
  - ARTHRALGIA [None]
  - BLISTER [None]
  - BURNING SENSATION [None]
  - OSTEOMYELITIS [None]
  - SKIN ULCER [None]
  - STREPTOCOCCAL INFECTION [None]
